FAERS Safety Report 14180053 (Version 2)
Quarter: 2017Q4

REPORT INFORMATION
  Report Type: Spontaneous
  Country: US (occurrence: US)
  Receive Date: 20171110
  Receipt Date: 20171120
  Transmission Date: 20180321
  Serious: No
  Sender: FDA-Public Use
  Company Number: US-PFIZER INC-2017255598

PATIENT
  Age: 90 Year
  Sex: Female
  Weight: 81.65 kg

DRUGS (16)
  1. SPIRIVA [Concomitant]
     Active Substance: TIOTROPIUM BROMIDE MONOHYDRATE
     Dosage: 18 UG, 1X/DAY
  2. LYRICA [Suspect]
     Active Substance: PREGABALIN
     Indication: NEUROPATHY PERIPHERAL
     Dosage: 100 MG, 2X/DAY (ONE CAPSULE BY MOUTH TWICE A DAY)
     Route: 048
  3. KLOR-CON M10 [Concomitant]
     Active Substance: POTASSIUM CHLORIDE
     Dosage: 10 MEQ, DAILY (TAKE ONE TABLET BY MOUTH DAILY)
     Route: 048
  4. LOMOTIL [Concomitant]
     Active Substance: ATROPINE SULFATE\DIPHENOXYLATE HYDROCHLORIDE
     Indication: DIARRHOEA
     Dosage: ONE BID, AS NEEDED
  5. PROBIOTIC [Concomitant]
     Active Substance: PROBIOTICS NOS
     Dosage: UNK
  6. LYRICA [Suspect]
     Active Substance: PREGABALIN
     Dosage: 50 MG, 3X/DAY
  7. ZOCOR [Concomitant]
     Active Substance: SIMVASTATIN
     Dosage: 20 MG, DAILY
  8. SIMVASTATIN. [Concomitant]
     Active Substance: SIMVASTATIN
     Dosage: 20 MG, DAILY
  9. RANITIDINE. [Concomitant]
     Active Substance: RANITIDINE
     Dosage: UNK, AS NEEDED
  10. CALCIUM [Concomitant]
     Active Substance: CALCIUM
     Dosage: UNK
  11. DIOVAN [Concomitant]
     Active Substance: VALSARTAN
     Dosage: 80 MG, AS NEEDED (ONE DAILY AS NEEDED)
  12. FUROSEMIDE. [Concomitant]
     Active Substance: FUROSEMIDE
     Dosage: 40 MG, DAILY
  13. ADVAIR HFA [Concomitant]
     Active Substance: FLUTICASONE PROPIONATE\SALMETEROL XINAFOATE
     Dosage: 2 PUFF, 2X/DAY
  14. LEGATRIN [Concomitant]
     Active Substance: ACETAMINOPHEN\DIPHENHYDRAMINE
     Indication: PAIN IN EXTREMITY
     Dosage: UNK
  15. LEGATRIN [Concomitant]
     Active Substance: ACETAMINOPHEN\DIPHENHYDRAMINE
     Indication: RESTLESSNESS
  16. LOSARTAN. [Concomitant]
     Active Substance: LOSARTAN
     Dosage: 80 MG, DAILY

REACTIONS (4)
  - Neuropathy peripheral [Unknown]
  - Condition aggravated [Unknown]
  - Somnolence [Recovering/Resolving]
  - Fatigue [Unknown]
